FAERS Safety Report 4596047-5 (Version None)
Quarter: 2005Q1

REPORT INFORMATION
  Report Type: 
  Country: None (occurrence: None)
  Receive Date: 20050224
  Receipt Date: 20050203
  Transmission Date: 20050727
  Serious: Yes (Hospitalization)
  Sender: FDA-Public Use
  Company Number: GBT041101787

PATIENT
  Age: 65 Year
  Sex: Female

DRUGS (10)
  1. GEMCITABINE HYDROCHLORIDE-IV (GEMCITABINE) [Suspect]
     Indication: OVARIAN CANCER
     Dosage: 1672 MG
  2. GEMCITABINE HYDROCHLORIDE-IV (GEMCITABINE) [Suspect]
     Indication: PERITONEAL CARCINOMA
     Dosage: 1672 MG
  3. CARBOPLATIN [Suspect]
     Indication: OVARIAN CANCER
     Dosage: 700 MG
  4. CARBOPLATIN [Suspect]
     Indication: PERITONEAL CARCINOMA
     Dosage: 700 MG
  5. WARFARIN SODIUM [Concomitant]
  6. ATORVASTATIN [Concomitant]
  7. CITALOPRAM HYDROBROMIDE [Concomitant]
  8. SANDO K (POTASSIUM CHLORIDE) [Concomitant]
  9. ATENOLOL [Concomitant]
  10. METOCLOPRAMIDE [Concomitant]

REACTIONS (12)
  - BODY TEMPERATURE INCREASED [None]
  - CIRCULATORY COLLAPSE [None]
  - GINGIVITIS [None]
  - HAEMOGLOBIN DECREASED [None]
  - HYPOVOLAEMIA [None]
  - NAUSEA [None]
  - NEUTROPENIA [None]
  - ORAL INTAKE REDUCED [None]
  - STOMATITIS [None]
  - TOOTHACHE [None]
  - VOMITING [None]
  - WHITE BLOOD CELL COUNT DECREASED [None]
